FAERS Safety Report 10308933 (Version 2)
Quarter: 2014Q3

REPORT INFORMATION
  Report Type: Spontaneous
  Country: IT (occurrence: IT)
  Receive Date: 20140716
  Receipt Date: 20140722
  Transmission Date: 20150326
  Serious: Yes (Hospitalization)
  Sender: FDA-Public Use
  Company Number: IT-BRISTOL-MYERS SQUIBB COMPANY-21195540

PATIENT
  Age: 90 Year
  Sex: Male

DRUGS (4)
  1. LANTUS [Suspect]
     Active Substance: INSULIN GLARGINE
     Indication: TYPE 1 DIABETES MELLITUS
     Dosage: LAST DOSE ON 04MAR14.
     Route: 058
     Dates: start: 20140101
  2. CARDIOASPIRIN [Concomitant]
     Active Substance: ASPIRIN
  3. METFORMIN HCL [Suspect]
     Active Substance: METFORMIN HYDROCHLORIDE
     Indication: TYPE 1 DIABETES MELLITUS
     Dosage: LAST DOSE ON: 04MAR14.
     Route: 048
     Dates: start: 20140101
  4. HUMALOG [Suspect]
     Active Substance: INSULIN LISPRO
     Indication: TYPE 1 DIABETES MELLITUS
     Dosage: LAST DOSE ON: 04MAR14
     Route: 058
     Dates: start: 20140101

REACTIONS (3)
  - Hypoglycaemia [Unknown]
  - Loss of consciousness [Unknown]
  - Balance disorder [Unknown]

NARRATIVE: CASE EVENT DATE: 20140304
